FAERS Safety Report 17363845 (Version 1)
Quarter: 2020Q1

REPORT INFORMATION
  Report Type: Spontaneous
  Country: ID (occurrence: ID)
  Receive Date: 20200203
  Receipt Date: 20200203
  Transmission Date: 20200409
  Serious: Yes (Death, Other)
  Sender: FDA-Public Use
  Company Number: ID-BAXTER-2020BAX002274

PATIENT
  Age: 70 Year
  Sex: Female

DRUGS (3)
  1. UROMITEXAN [Suspect]
     Active Substance: MESNA
     Indication: CERVIX CARCINOMA
     Dosage: DAY 1,3, 5
     Route: 042
  2. CISPLATIN. [Suspect]
     Active Substance: CISPLATIN
     Indication: CERVIX CARCINOMA
     Dosage: D1 EACH CYCLE
     Route: 042
  3. HOLOXAN (2G) [Suspect]
     Active Substance: IFOSFAMIDE
     Indication: CERVIX CARCINOMA
     Dosage: DAYS 1,3,5
     Route: 042

REACTIONS (3)
  - General physical health deterioration [Unknown]
  - Encephalopathy [Recovering/Resolving]
  - Death [Fatal]

NARRATIVE: CASE EVENT DATE: 20200124
